FAERS Safety Report 12605024 (Version 2)
Quarter: 2016Q4

REPORT INFORMATION
  Report Type: Spontaneous
  Country: US (occurrence: US)
  Receive Date: 20160728
  Receipt Date: 20161006
  Transmission Date: 20170207
  Serious: Yes (Other)
  Sender: FDA-Public Use
  Company Number: US-ASTRAZENECA-2016SE80600

PATIENT
  Age: 57 Year
  Sex: Female

DRUGS (2)
  1. TUDORZA PRESSAIR [Suspect]
     Active Substance: ACLIDINIUM BROMIDE
     Indication: BRONCHIAL DISORDER
     Route: 055
     Dates: start: 201606, end: 201607
  2. TUDORZA PRESSAIR [Suspect]
     Active Substance: ACLIDINIUM BROMIDE
     Indication: VASOMOTOR RHINITIS
     Route: 055
     Dates: start: 201606, end: 201607

REACTIONS (8)
  - Pulmonary oedema [Unknown]
  - Intentional product misuse [Unknown]
  - Product use issue [Unknown]
  - Circumstance or information capable of leading to medication error [Unknown]
  - Bronchitis [Unknown]
  - Off label use [Unknown]
  - Device malfunction [Unknown]
  - Pulmonary congestion [Unknown]

NARRATIVE: CASE EVENT DATE: 2015
